FAERS Safety Report 19027274 (Version 1)
Quarter: 2021Q1

REPORT INFORMATION
  Report Type: Spontaneous
  Country: JP (occurrence: JP)
  Receive Date: 20210318
  Receipt Date: 20210318
  Transmission Date: 20210420
  Serious: Yes (Other)
  Sender: FDA-Public Use
  Company Number: JP-DSJP-DSJ-2021-107537

PATIENT
  Age: 84 Year
  Sex: Female
  Weight: 40 kg

DRUGS (1)
  1. LIXIANA OD TABLETS 30MG [Suspect]
     Active Substance: EDOXABAN TOSYLATE
     Indication: PRODUCT USED FOR UNKNOWN INDICATION
     Dosage: 30 MG, QD
     Route: 048
     Dates: end: 20210305

REACTIONS (2)
  - Haemorrhage [Recovering/Resolving]
  - Renal impairment [Unknown]
